FAERS Safety Report 5999140-5 (Version None)
Quarter: 2008Q4

REPORT INFORMATION
  Report Type: 
  Country: None (occurrence: None)
  Receive Date: 20081211
  Receipt Date: 20081125
  Transmission Date: 20090506
  Serious: Yes (Death)
  Sender: FDA-Public Use
  Company Number: KV200800809

PATIENT
  Age: 25 Year
  Sex: Male
  Weight: 81.6 kg

DRUGS (1)
  1. MORPHINE SULFATE [Suspect]
     Indication: LUNG DISORDER
     Dosage: 15 MG, Q4H, ORAL
     Route: 048
     Dates: start: 20080427, end: 20080427

REACTIONS (2)
  - LUNG DISORDER [None]
  - PRODUCT QUALITY ISSUE [None]
